FAERS Safety Report 24207438 (Version 1)
Quarter: 2024Q3

REPORT INFORMATION
  Report Type: Spontaneous
  Country: FR (occurrence: None)
  Receive Date: 20240814
  Receipt Date: 20240814
  Transmission Date: 20241017
  Serious: Yes (Hospitalization, Other)
  Sender: ASTRAZENECA
  Company Number: 2024A181668

PATIENT
  Age: 82 Year
  Sex: Male

DRUGS (1)
  1. DAPAGLIFLOZIN [Suspect]
     Active Substance: DAPAGLIFLOZIN
     Indication: Prophylaxis
     Route: 048
     Dates: start: 202406, end: 202407

REACTIONS (8)
  - Bacterial infection [Recovered/Resolved]
  - Diabetic ketoacidosis [Unknown]
  - Fatigue [Unknown]
  - Weight decreased [Unknown]
  - Blood potassium abnormal [Unknown]
  - Nausea [Unknown]
  - Decreased appetite [Unknown]
  - Dysgeusia [Unknown]

NARRATIVE: CASE EVENT DATE: 20240601
